FAERS Safety Report 5531220-0 (Version None)
Quarter: 2007Q4

REPORT INFORMATION
  Report Type: 
  Country: None (occurrence: None)
  Receive Date: 20071130
  Receipt Date: 20071119
  Transmission Date: 20080405
  Serious: Yes (Disabling)
  Sender: FDA-Public Use
  Company Number: FR-MERCK-0704FRA00094

PATIENT
  Sex: Female

DRUGS (4)
  1. FOSAMAX [Suspect]
     Indication: OSTEOPOROSIS
     Route: 048
     Dates: start: 20061101, end: 20070415
  2. FOSAMAX [Suspect]
     Route: 048
     Dates: start: 20070501
  3. ANASTROZOLE [Concomitant]
     Indication: BREAST CANCER
     Route: 048
     Dates: end: 20070601
  4. ANASTROZOLE [Concomitant]
     Route: 048
     Dates: start: 20070801

REACTIONS (2)
  - ANKLE FRACTURE [None]
  - ARTHRALGIA [None]
